FAERS Safety Report 7539066-9 (Version None)
Quarter: 2011Q2

REPORT INFORMATION
  Report Type: 
  Country: None (occurrence: None)
  Receive Date: 20110610
  Receipt Date: 20021023
  Transmission Date: 20111010
  Serious: Yes (Hospitalization)
  Sender: FDA-Public Use
  Company Number: PHFR2002GB03498

PATIENT
  Sex: Female

DRUGS (1)
  1. CLOZARIL [Suspect]
     Indication: SCHIZOPHRENIA
     Dosage: U NKNOWN
     Route: 048
     Dates: start: 19940429

REACTIONS (2)
  - DIABETIC KETOACIDOSIS [None]
  - ULCER [None]
